FAERS Safety Report 6099749-7 (Version None)
Quarter: 2009Q1

REPORT INFORMATION
  Report Type: 
  Country: None (occurrence: None)
  Receive Date: 20090303
  Receipt Date: 20090218
  Transmission Date: 20090719
  Serious: Yes (Other)
  Sender: FDA-Public Use
  Company Number: US-ROCHE-615481

PATIENT
  Sex: Male

DRUGS (2)
  1. PEG-INTERFERON A-2A (RO 25-8310) [Suspect]
     Indication: HEPATITIS C
     Dosage: FORM: PFS (PRE FILLED SYRINGE)
     Route: 065
     Dates: start: 20080725, end: 20090105
  2. RIBAVIRIN [Suspect]
     Indication: HEPATITIS C
     Dosage: DIVIDED DOSES
     Route: 065
     Dates: start: 20080725, end: 20090105

REACTIONS (3)
  - COUGH [None]
  - NASOPHARYNGITIS [None]
  - SMALL CELL CARCINOMA [None]
